FAERS Safety Report 4635832-8 (Version None)
Quarter: 2005Q2

REPORT INFORMATION
  Report Type: 
  Country: None (occurrence: None)
  Receive Date: 20050413
  Receipt Date: 20050404
  Transmission Date: 20051028
  Serious: Yes (Hospitalization)
  Sender: FDA-Public Use
  Company Number: PERC20050021

PATIENT
  Sex: Female

DRUGS (10)
  1. PERCOCET [Suspect]
     Indication: PAIN
  2. VICODIN [Suspect]
     Indication: PAIN
  3. RESTORIL [Concomitant]
  4. TRAZODONE HCL [Concomitant]
  5. POTASSIUM SUPPLEMENT [Concomitant]
  6. LASIX [Concomitant]
  7. LOMOTIL [Concomitant]
  8. PHRENILIN [Concomitant]
  9. ZANTAC [Concomitant]
  10. IBUPROFEN [Concomitant]

REACTIONS (3)
  - ABDOMINAL PAIN [None]
  - CONSTIPATION [None]
  - HEADACHE [None]
